FAERS Safety Report 7900067-X (Version None)
Quarter: 2011Q4

REPORT INFORMATION
  Report Type: 
  Country: None (occurrence: None)
  Receive Date: 20111108
  Receipt Date: 20111031
  Transmission Date: 20120403
  Serious: Yes (Hospitalization, Other)
  Sender: FDA-Public Use
  Company Number: US-BIOGENIDEC-2011BI011127

PATIENT
  Age: 37 Year
  Sex: Female

DRUGS (3)
  1. AVONEX [Suspect]
     Indication: MULTIPLE SCLEROSIS
     Route: 030
     Dates: start: 20100323
  2. AVONEX [Suspect]
     Route: 030
  3. MARIJUANA [Concomitant]
     Indication: MULTIPLE SCLEROSIS

REACTIONS (9)
  - ENDOMETRIAL CANCER [None]
  - FALL [None]
  - PAIN IN EXTREMITY [None]
  - WEIGHT DECREASED [None]
  - PELVIC FRACTURE [None]
  - JOINT RANGE OF MOTION DECREASED [None]
  - MUSCULOSKELETAL STIFFNESS [None]
  - HUMERUS FRACTURE [None]
  - PROCEDURAL PAIN [None]
